FAERS Safety Report 8235732-0 (Version None)
Quarter: 2012Q1

REPORT INFORMATION
  Report Type: 
  Country: None (occurrence: None)
  Receive Date: 20120326
  Receipt Date: 20120320
  Transmission Date: 20120608
  Serious: Yes (Other)
  Sender: FDA-Public Use
  Company Number: PHEH2011US010108

PATIENT
  Sex: Male
  Weight: 57.8 kg

DRUGS (3)
  1. EXJADE [Suspect]
     Dosage: 750 MG, DAILY
     Route: 048
     Dates: start: 20110301
  2. EXJADE [Suspect]
     Indication: HAEMOSIDEROSIS
     Dosage: 1500 MG QD
     Route: 048
  3. EXJADE [Suspect]
     Dosage: 750 MG, DAILY
     Route: 048
     Dates: start: 20090801, end: 20101220

REACTIONS (3)
  - HYPOACUSIS [None]
  - CERUMEN IMPACTION [None]
  - MIDDLE EAR EFFUSION [None]
